FAERS Safety Report 5324176-7 (Version None)
Quarter: 2007Q2

REPORT INFORMATION
  Report Type: 
  Country: None (occurrence: None)
  Receive Date: 20070514
  Receipt Date: 20070507
  Transmission Date: 20071010
  Serious: Yes (Hospitalization)
  Sender: FDA-Public Use
  Company Number: US-ELI_LILLY_AND_COMPANY-US200603003126

PATIENT
  Age: 36 Year
  Sex: Female
  Weight: 90.702 kg

DRUGS (2)
  1. ZYPREXA [Suspect]
     Indication: POST-TRAUMATIC STRESS DISORDER
     Dosage: 10 MG, UNK
     Dates: start: 20030101, end: 20050101
  2. ZYPREXA [Suspect]
     Dosage: 20 MG, UNK
     Dates: start: 20030101, end: 20050101

REACTIONS (6)
  - BLOOD CHOLESTEROL INCREASED [None]
  - DIABETES MELLITUS [None]
  - GENERAL PHYSICAL HEALTH DETERIORATION [None]
  - HYPERTENSION [None]
  - OBESITY [None]
  - WEIGHT INCREASED [None]
